FAERS Safety Report 5073620-1 (Version None)
Quarter: 2006Q3

REPORT INFORMATION
  Report Type: 
  Country: None (occurrence: None)
  Receive Date: 20060805
  Receipt Date: 20060714
  Transmission Date: 20061208
  Serious: Yes (Death, Hospitalization)
  Sender: FDA-Public Use
  Company Number: WSDF_00554

PATIENT
  Age: 51 Year
  Sex: Male
  Weight: 98.4306 kg

DRUGS (19)
  1. WINRHO SDF [Suspect]
     Indication: THROMBOCYTOPENIA
     Dosage: 75 UG/KG ONCE IV
     Route: 042
     Dates: start: 20060516, end: 20060516
  2. WINRHO SDF [Suspect]
     Indication: THROMBOCYTOPENIA
     Dates: start: 20060516, end: 20060516
  3. WINRHO SDF [Suspect]
     Indication: THROMBOCYTOPENIA
     Dosage: 7300 MCG ONCE IV
     Route: 042
     Dates: start: 20060427, end: 20060427
  4. WINRHO SDF [Suspect]
     Indication: THROMBOCYTOPENIA
     Dates: start: 20060427, end: 20060427
  5. PEGASYS [Concomitant]
  6. RIBAVIRIN [Concomitant]
  7. NEUPOGEN [Concomitant]
  8. PROCRIT [Concomitant]
  9. METHADONE HCL [Concomitant]
  10. GLUCOTROL [Concomitant]
  11. FOLATE [Concomitant]
  12. IRON SULFATETHIAMIN COMPOUND TAB [Concomitant]
  13. VITAMIN K [Concomitant]
  14. VITAMIN B-12 [Concomitant]
  15. LASIX [Concomitant]
  16. ALDACTONE [Concomitant]
  17. LACTULOSE [Concomitant]
  18. PREVACID [Concomitant]
  19. LEVOFLOXACIN [Concomitant]

REACTIONS (44)
  - ABDOMINAL DISTENSION [None]
  - ACTIVATED PARTIAL THROMBOPLASTIN TIME PROLONGED [None]
  - ACUTE RESPIRATORY DISTRESS SYNDROME [None]
  - ANAEMIA [None]
  - ASCITES [None]
  - BACTERIAL SEPSIS [None]
  - BLOOD ALBUMIN DECREASED [None]
  - CARDIAC ARREST [None]
  - CHEST X-RAY ABNORMAL [None]
  - CLOSTRIDIUM DIFFICILE COLITIS [None]
  - COAGULOPATHY [None]
  - COUGH [None]
  - DIFFICULT TO WEAN FROM VENTILATOR [None]
  - DRY MOUTH [None]
  - DYSPNOEA [None]
  - ELECTROMECHANICAL DISSOCIATION [None]
  - ESCHERICHIA BACTERAEMIA [None]
  - EXERCISE TOLERANCE DECREASED [None]
  - FATIGUE [None]
  - FLUID OVERLOAD [None]
  - GENERALISED OEDEMA [None]
  - HAEMOLYSIS [None]
  - HEADACHE [None]
  - HEPATIC ENCEPHALOPATHY [None]
  - HEPATIC FAILURE [None]
  - HYPERCAPNIA [None]
  - HYPERGLYCAEMIA [None]
  - HYPERHIDROSIS [None]
  - HYPOGLYCAEMIA [None]
  - HYPOTENSION [None]
  - LETHARGY [None]
  - LUNG INFILTRATION [None]
  - NEUTROPENIA [None]
  - PAIN IN JAW [None]
  - PERITONITIS BACTERIAL [None]
  - PNEUMONIA [None]
  - PROTHROMBIN TIME PROLONGED [None]
  - RESPIRATORY DISTRESS [None]
  - RESPIRATORY FAILURE [None]
  - SPUTUM CULTURE POSITIVE [None]
  - SYNCOPE [None]
  - THROMBOCYTOPENIA [None]
  - TOOTHACHE [None]
  - WEIGHT INCREASED [None]
